FAERS Safety Report 7075218-2 (Version None)
Quarter: 2010Q4

REPORT INFORMATION
  Report Type: 
  Country: None (occurrence: None)
  Receive Date: 20101030
  Receipt Date: 20100803
  Transmission Date: 20110411
  Serious: No
  Sender: FDA-Public Use
  Company Number: US-WYE-H16692910

PATIENT
  Age: 30 Year
  Sex: Male

DRUGS (1)
  1. TYGACIL [Suspect]
     Indication: ABDOMINAL INFECTION
     Dosage: UNKNOWN
     Route: 065

REACTIONS (3)
  - CHROMATURIA [None]
  - OCULAR ICTERUS [None]
  - YELLOW SKIN [None]
